FAERS Safety Report 25473663 (Version 2)
Quarter: 2025Q3

REPORT INFORMATION
  Report Type: Spontaneous
  Country: US (occurrence: US)
  Receive Date: 20250624
  Receipt Date: 20250722
  Transmission Date: 20251020
  Serious: Yes (Death, Other)
  Sender: ALEXION PHARMACEUTICALS
  Company Number: US-AstraZeneca-CH-00896004A

PATIENT
  Age: 3 Year
  Sex: Male

DRUGS (1)
  1. SOLIRIS [Suspect]
     Active Substance: ECULIZUMAB
     Route: 065

REACTIONS (5)
  - Krabbe^s disease [Fatal]
  - Graft versus host disease in gastrointestinal tract [Fatal]
  - Thrombotic microangiopathy [Fatal]
  - Gastrointestinal haemorrhage [Fatal]
  - Infection [Fatal]

NARRATIVE: CASE EVENT DATE: 20250208
